FAERS Safety Report 9600190 (Version 1)
Quarter: 2013Q4

REPORT INFORMATION
  Report Type: Spontaneous
  Country: US (occurrence: US)
  Receive Date: 20131004
  Receipt Date: 20131004
  Transmission Date: 20140711
  Serious: No
  Sender: FDA-Public Use
  Company Number: US-AMGEN-USASP2013033450

PATIENT
  Age: 50 Year
  Sex: Female
  Weight: 122.4 kg

DRUGS (10)
  1. ENBREL [Suspect]
     Indication: PRODUCT USED FOR UNKNOWN INDICATION
     Dosage: 50 MG, QWK
     Route: 058
  2. NAPROXEN DELAYED RELEASE [Concomitant]
     Dosage: 375 MG, UNK
  3. METHOTREXATE [Concomitant]
     Dosage: 2.5 MG, UNK
  4. FOLIC ACID [Concomitant]
     Dosage: UNK
  5. CLARITIN                           /00917501/ [Concomitant]
     Dosage: 10 MG, UNK
  6. MULTIVITAMIN                       /07504101/ [Concomitant]
     Dosage: UNK
  7. POTASSIUM [Concomitant]
     Dosage: 95 MG, UNK
  8. FLAXSEED OIL [Concomitant]
     Dosage: UNK
  9. VITAMIN C                          /00008001/ [Concomitant]
     Dosage: 500 MG, UNK
  10. VITAMIN D                          /00107901/ [Concomitant]
     Dosage: 1000 UNIT, UNK

REACTIONS (2)
  - Abdominal discomfort [Unknown]
  - Diarrhoea [Unknown]
